FAERS Safety Report 11923151 (Version 1)
Quarter: 2016Q1

REPORT INFORMATION
  Report Type: Spontaneous
  Country: US (occurrence: US)
  Receive Date: 20160117
  Receipt Date: 20160117
  Transmission Date: 20160526
  Serious: Yes (Death)
  Sender: FDA-Public Use
  Company Number: US-ROCHE-1658863

PATIENT
  Sex: Female
  Weight: 74 kg

DRUGS (1)
  1. ESBRIET [Suspect]
     Active Substance: PIRFENIDONE
     Indication: IDIOPATHIC PULMONARY FIBROSIS
     Dosage: 267MG, TOTAL 1869 MG?534MG AM + AFTERNOON, 801MG PM
     Route: 048
     Dates: start: 20150415

REACTIONS (4)
  - Vitamin D decreased [Unknown]
  - Sneezing [Unknown]
  - Fibrosis [Fatal]
  - Rhinorrhoea [Unknown]
